FAERS Safety Report 26197308 (Version 1)
Quarter: 2025Q4

REPORT INFORMATION
  Report Type: Spontaneous
  Country: US (occurrence: US)
  Receive Date: 20251224
  Receipt Date: 20251224
  Transmission Date: 20260117
  Serious: No
  Sender: MADRIGAL PHARMACEUTICALS
  Company Number: US-MADRIGAL PHARMACEUTICALS, INC-2025USREZ12255

PATIENT

DRUGS (18)
  1. REZDIFFRA [Suspect]
     Active Substance: RESMETIROM
     Indication: Metabolic dysfunction-associated steatohepatitis
     Dosage: 100 MILLIGRAM
     Route: 065
     Dates: start: 20250826
  2. REZDIFFRA [Suspect]
     Active Substance: RESMETIROM
     Dosage: 80 MILLIGRAM, QD
     Route: 048
     Dates: start: 20251002
  3. CLARITIN [Concomitant]
     Active Substance: LORATADINE
  4. SIMVASTATIN [Concomitant]
     Active Substance: SIMVASTATIN
     Dosage: 20 MILLIGRAM
  5. ALLOPURINOL [Concomitant]
     Active Substance: ALLOPURINOL
     Dosage: 300 MILLIGRAM
  6. COENZYME Q10 [Concomitant]
     Active Substance: DIETARY SUPPLEMENT\UBIDECARENONE
  7. HERBALS\TURMERIC [Concomitant]
     Active Substance: HERBALS\TURMERIC
  8. FISH OIL [Concomitant]
     Active Substance: FISH OIL
  9. VITAMIN C [Concomitant]
     Active Substance: ASCORBIC ACID
     Dosage: 500 MILLIGRAM, QD
  10. Vitamin d nos;Zinc [Concomitant]
  11. VITAMINS [Concomitant]
     Active Substance: VITAMINS
     Dosage: UNK, QD
  12. ZOCOR [Concomitant]
     Active Substance: SIMVASTATIN
     Dosage: 20 MILLIGRAM, QD
  13. ZYLOPRIM [Concomitant]
     Active Substance: ALLOPURINOL
     Dosage: 300 MILLIGRAM, QD
  14. TIZANIDINE HYDROCHLORIDE [Concomitant]
     Active Substance: TIZANIDINE HYDROCHLORIDE
     Dosage: 4 MILLIGRAM, Q6H AS NEEDED
  15. Mobil [Concomitant]
     Dosage: 15 MILLIGRAM, QD, AS NEEDED
  16. FLONASE [Concomitant]
     Active Substance: FLUTICASONE PROPIONATE
     Dosage: 50 MICROGRAM, BID
  17. TYLENOL [Concomitant]
     Active Substance: ACETAMINOPHEN
     Dosage: 325 MILLIGRAM, Q8H PRN
  18. VITAMIN D3 [Concomitant]
     Active Substance: CHOLECALCIFEROL
     Dosage: 50 MICROGRAM

REACTIONS (3)
  - Weight decreased [Unknown]
  - Nasopharyngitis [Recovered/Resolved]
  - Diarrhoea [Recovered/Resolved]

NARRATIVE: CASE EVENT DATE: 20250829
